FAERS Safety Report 7827446-3 (Version None)
Quarter: 2011Q4

REPORT INFORMATION
  Report Type: 
  Country: None (occurrence: None)
  Receive Date: 20111020
  Receipt Date: 20110922
  Transmission Date: 20120403
  Serious: Yes (Hospitalization, Disabling)
  Sender: FDA-Public Use
  Company Number: PL-ROCHE-790265

PATIENT
  Sex: Male
  Weight: 65 kg

DRUGS (4)
  1. COPEGUS [Suspect]
  2. PEG-INTERFERON ALFA 2A [Suspect]
     Indication: HEPATITIS C
     Route: 065
  3. COPEGUS [Suspect]
     Indication: HEPATITIS C
     Route: 048
     Dates: start: 20110419, end: 20110714
  4. TELAPREVIR [Suspect]
     Indication: HEPATITIS C
     Route: 048
     Dates: start: 20110419, end: 20110711

REACTIONS (5)
  - ANAEMIA [None]
  - PYREXIA [None]
  - GASTRITIS [None]
  - RASH GENERALISED [None]
  - RENAL FAILURE [None]
